FAERS Safety Report 13664600 (Version 2)
Quarter: 2017Q4

REPORT INFORMATION
  Report Type: Spontaneous
  Country: IT (occurrence: IT)
  Receive Date: 20170619
  Receipt Date: 20171026
  Transmission Date: 20180320
  Serious: Yes (Hospitalization, Other)
  Sender: FDA-Public Use
  Company Number: IT-GLAXOSMITHKLINE-IT2017GSK092949

PATIENT
  Age: 45 Year
  Sex: Female

DRUGS (4)
  1. BRUFEN [Concomitant]
     Active Substance: IBUPROFEN
     Indication: PRODUCT USED FOR UNKNOWN INDICATION
     Dosage: 800 MG, UNK
     Dates: start: 20170201, end: 20170430
  2. ALLI [Suspect]
     Active Substance: ORLISTAT
     Indication: OBESITY
     Dosage: 3 DF, QD
     Dates: start: 20170201, end: 20170331
  3. MOMENTACT (IBUPROFEN) [Concomitant]
     Indication: PRODUCT USED FOR UNKNOWN INDICATION
     Dosage: 2 DF, UNK
     Dates: start: 20170201, end: 20170430
  4. BENTELAN (BETAMETHASONE SODIUM PHOSPHATE) [Concomitant]
     Active Substance: BETAMETHASONE SODIUM PHOSPHATE
     Indication: PRODUCT USED FOR UNKNOWN INDICATION
     Dosage: 2.5 DF, QD
     Route: 048
     Dates: start: 20170101, end: 20170430

REACTIONS (1)
  - Hepatitis acute [Recovering/Resolving]

NARRATIVE: CASE EVENT DATE: 20170401
